FAERS Safety Report 9094673 (Version 1)
Quarter: 2013Q1

REPORT INFORMATION
  Report Type: Spontaneous
  Country: US (occurrence: US)
  Receive Date: 20130220
  Receipt Date: 20130220
  Transmission Date: 20140127
  Serious: No
  Sender: FDA-Public Use
  Company Number: US-009507513-1301USA010813

PATIENT
  Sex: Male

DRUGS (5)
  1. DULERA [Suspect]
     Indication: ASTHMA
     Dosage: 2 PUFFS, QD
     Route: 055
     Dates: start: 201202
  2. SINGULAIR [Concomitant]
     Route: 048
  3. ZYRTEC [Concomitant]
  4. FLONASE [Concomitant]
  5. ALBUTEROL [Concomitant]

REACTIONS (2)
  - Dyspnoea [Not Recovered/Not Resolved]
  - Drug ineffective [Unknown]
